FAERS Safety Report 13212183 (Version 1)
Quarter: 2017Q1

REPORT INFORMATION
  Report Type: Spontaneous
  Country: US (occurrence: US)
  Receive Date: 20170210
  Receipt Date: 20170210
  Transmission Date: 20170428
  Serious: No
  Sender: FDA-Public Use
  Company Number: US-SUN PHARMACEUTICAL INDUSTRIES LTD-2015US-101154

PATIENT
  Age: 62 Year
  Sex: Female

DRUGS (2)
  1. CETIRIZINE [Suspect]
     Active Substance: CETIRIZINE HYDROCHLORIDE
     Indication: HYPERSENSITIVITY
     Dosage: 1 DF, DAILY
     Route: 065
     Dates: start: 2015
  2. BABY ASPIRIN [Concomitant]
     Active Substance: ASPIRIN
     Indication: DRY EYE
     Dosage: 81 MG, DAILY
     Route: 065

REACTIONS (4)
  - Therapeutic response decreased [Recovering/Resolving]
  - Off label use [Unknown]
  - Feeling abnormal [Unknown]
  - Dizziness [Unknown]

NARRATIVE: CASE EVENT DATE: 2015
